FAERS Safety Report 8015429-2 (Version None)
Quarter: 2011Q4

REPORT INFORMATION
  Report Type: 
  Country: None (occurrence: None)
  Receive Date: 20111230
  Receipt Date: 20111222
  Transmission Date: 20120403
  Serious: Yes (Hospitalization)
  Sender: FDA-Public Use
  Company Number: IT-BRISTOL-MYERS SQUIBB COMPANY-16295719

PATIENT
  Age: 76 Year
  Sex: Female

DRUGS (10)
  1. BISOPROLOL FUMARATE [Concomitant]
  2. DONEPEZIL HCL [Concomitant]
  3. CANDESARTAN CILEXETIL [Concomitant]
  4. GLUCOPHAGE [Suspect]
     Indication: TYPE 2 DIABETES MELLITUS
     Route: 048
     Dates: start: 20110401, end: 20110705
  5. ATORVASTATIN CALCIUM [Concomitant]
  6. ASPIRIN [Concomitant]
  7. CANDESARTAN CILEXETIL [Concomitant]
  8. MEMANTINE HYDROCHLORIDE [Concomitant]
  9. GLYBURIDE [Suspect]
     Indication: TYPE 2 DIABETES MELLITUS
     Dosage: 1DF:1,5U, 5MG/500MG
     Route: 048
     Dates: start: 20070401, end: 20110705
  10. NORVASC [Concomitant]

REACTIONS (4)
  - CONFUSIONAL STATE [None]
  - BRADYKINESIA [None]
  - HYPOGLYCAEMIA [None]
  - BRADYPHRENIA [None]
